FAERS Safety Report 8536745-1 (Version None)
Quarter: 2012Q3

REPORT INFORMATION
  Report Type: 
  Country: None (occurrence: None)
  Receive Date: 20120725
  Receipt Date: 20120720
  Transmission Date: 20120928
  Serious: Yes (Hospitalization)
  Sender: FDA-Public Use
  Company Number: US-BAYER-2012-042294

PATIENT
  Age: 63 Year
  Sex: Male
  Weight: 73 kg

DRUGS (13)
  1. PLAVIX [Concomitant]
     Indication: MYOCARDIAL INFARCTION
     Dosage: 75 MG, QD
     Dates: start: 20110101
  2. TOPROL-XL [Concomitant]
     Indication: MYOCARDIAL INFARCTION
     Dosage: 25 MG, QD
     Dates: start: 20110101
  3. BETASERON [Suspect]
     Indication: MULTIPLE SCLEROSIS
     Dosage: UNK
     Route: 058
     Dates: start: 19950101
  4. BETASERON [Suspect]
     Dosage: 0.3 MG, QOD
     Route: 058
     Dates: start: 20100323
  5. CLONAZEPAM [Concomitant]
     Indication: MULTIPLE SCLEROSIS
     Dosage: 1 MG, QD
     Dates: start: 19780101
  6. SYNTHROID [Concomitant]
     Indication: HYPOTHYROIDISM
     Dosage: 137 ?G, QD
     Dates: start: 19850101
  7. LUMIGAN [Concomitant]
     Indication: GLAUCOMA
     Dosage: UNK
     Dates: start: 20080101
  8. LASIX [Concomitant]
     Indication: MYOCARDIAL INFARCTION
     Dosage: 20 MG, QD
     Dates: start: 20110101
  9. PEPCID [Concomitant]
     Indication: MYOCARDIAL INFARCTION
     Dosage: 20 MG, QD
     Dates: start: 20110101
  10. ASPIRIN [Concomitant]
     Indication: MYOCARDIAL INFARCTION
     Dosage: 81 MG, QD
     Dates: start: 20110101
  11. CRESTOR [Concomitant]
     Indication: MYOCARDIAL INFARCTION
     Dosage: 5 MG, QOD
     Dates: start: 20110101
  12. LISINOPRIL [Concomitant]
     Indication: MYOCARDIAL INFARCTION
     Dosage: 10 MG, QD
     Dates: start: 20110101
  13. BACLOFEN [Concomitant]
     Indication: MULTIPLE SCLEROSIS
     Dosage: 20MG IN AM, 50MG IN PM
     Dates: start: 19780101

REACTIONS (1)
  - SKIN ULCER [None]
